FAERS Safety Report 11380202 (Version 6)
Quarter: 2015Q4

REPORT INFORMATION
  Report Type: Report from Study
  Country: US (occurrence: US)
  Receive Date: 20150814
  Receipt Date: 20151019
  Transmission Date: 20160304
  Serious: Yes (Hospitalization)
  Sender: FDA-Public Use
  Company Number: US-AMGEN-USASL2015081874

PATIENT
  Age: 81 Year
  Sex: Female

DRUGS (2)
  1. ENBREL [Suspect]
     Active Substance: ETANERCEPT
     Dosage: 50 MG, QWK
     Route: 065
     Dates: start: 20151007
  2. ENBREL [Suspect]
     Active Substance: ETANERCEPT
     Indication: RHEUMATOID ARTHRITIS
     Dosage: 50 MG, QWK
     Route: 065
     Dates: start: 20150625, end: 20150810

REACTIONS (8)
  - Anal polyp [Recovered/Resolved]
  - Electrolyte imbalance [Unknown]
  - Pyrexia [Not Recovered/Not Resolved]
  - Precancerous cells present [Recovered/Resolved]
  - Pain [Unknown]
  - Rash [Not Recovered/Not Resolved]
  - Back pain [Unknown]
  - Neck pain [Unknown]

NARRATIVE: CASE EVENT DATE: 2015
